FAERS Safety Report 14738812 (Version 1)
Quarter: 2018Q2

REPORT INFORMATION
  Report Type: Spontaneous
  Country: DE (occurrence: DE)
  Receive Date: 20180409
  Receipt Date: 20180409
  Transmission Date: 20180711
  Serious: Yes (Other)
  Sender: FDA-Public Use
  Company Number: DE-TEVA-2018-DE-879697

PATIENT
  Age: 37 Year
  Sex: Female
  Weight: 52 kg

DRUGS (5)
  1. MAGNETRANS FORTE [Concomitant]
     Active Substance: MAGNESIUM OXIDE
     Indication: CONSTIPATION
     Dosage: 600 MILLIGRAM DAILY;
     Route: 048
  2. BECLOMETASONE [Concomitant]
     Active Substance: BECLOMETHASONE DIPROPIONATE
     Indication: NASAL POLYPS
     Dosage: [100 MG/D (PER SIDE 50 ?G)]
     Route: 045
     Dates: start: 20161231, end: 20170926
  3. FOLIO (NEM) [Concomitant]
     Indication: PROPHYLAXIS OF NEURAL TUBE DEFECT
     Dosage: 0.4[MG/D ]
     Route: 048
     Dates: start: 20161231, end: 20170926
  4. QUETIAPINE. [Suspect]
     Active Substance: QUETIAPINE
     Indication: DEPRESSION
     Dosage: 300 [MG/D RET. ]/ AT GW 32+3 DOSAGE INCREASED TO 300 MG/D RET. (FROM 250), ADDITIONALLY 25MG NON-RET
     Route: 048
     Dates: start: 20161231, end: 20170926
  5. SKINOREN [Concomitant]
     Active Substance: AZELAIC ACID
     Indication: ACNE
     Dosage: 20%
     Route: 003

REACTIONS (1)
  - Gestational diabetes [Recovered/Resolved]
